FAERS Safety Report 13706262 (Version 3)
Quarter: 2017Q3

REPORT INFORMATION
  Report Type: Spontaneous
  Country: FR (occurrence: FR)
  Receive Date: 20170630
  Receipt Date: 20170804
  Transmission Date: 20171127
  Serious: Yes (Hospitalization)
  Sender: FDA-Public Use
  Company Number: FR-PFIZER INC-2017278308

PATIENT
  Age: 68 Year
  Sex: Male

DRUGS (26)
  1. ENDOXAN /00021101/ [Interacting]
     Active Substance: CYCLOPHOSPHAMIDE
     Indication: DIFFUSE LARGE B-CELL LYMPHOMA STAGE IV
     Dosage: 1585 MG, SINGLE
     Route: 042
     Dates: start: 20170515, end: 20170515
  2. ALLOPURINOL. [Concomitant]
     Active Substance: ALLOPURINOL
  3. EPREX [Concomitant]
     Active Substance: ERYTHROPOIETIN
  4. CARTEOL /00422901/ [Concomitant]
     Active Substance: ATENOLOL
  5. ZELITREX [Concomitant]
     Active Substance: VALACYCLOVIR HYDROCHLORIDE
  6. MOVICOL [Concomitant]
     Active Substance: POLYETHYLENE GLYCOL 3350\POTASSIUM CHLORIDE\SODIUM BICARBONATE\SODIUM CHLORIDE
  7. NEUPOGEN [Concomitant]
     Active Substance: FILGRASTIM
  8. ARACYTINE [Suspect]
     Active Substance: CYTARABINE
     Indication: DIFFUSE LARGE B-CELL LYMPHOMA STAGE IV
     Dosage: 30 MG, SINGLE
     Route: 037
     Dates: start: 20170510, end: 20170510
  9. LEVOTHYROX [Concomitant]
     Active Substance: LEVOTHYROXINE
  10. EMEND [Concomitant]
     Active Substance: APREPITANT
  11. BETAHISTINE [Concomitant]
     Active Substance: BETAHISTINE
  12. ZOPHREN /00955301/ [Concomitant]
     Active Substance: ONDANSETRON
  13. SPASFON /00765801/ [Concomitant]
     Active Substance: PHLOROGLUCINOL\1,3,5-TRIMETHOXYBENZENE
     Dosage: UNK UNK, AS NEEDED
  14. DOXORUBICIN HCL [Interacting]
     Active Substance: DOXORUBICIN HYDROCHLORIDE
     Indication: DIFFUSE LARGE B-CELL LYMPHOMA STAGE IV
     Dosage: 21.1 MG, 1X/DAY
     Route: 042
     Dates: start: 20170511, end: 20170514
  15. PRIMPERAN [Concomitant]
     Active Substance: METOCLOPRAMIDE HYDROCHLORIDE
  16. VINCRISTINE TEVA [Interacting]
     Active Substance: VINCRISTINE
     Indication: DIFFUSE LARGE B-CELL LYMPHOMA STAGE IV
     Dosage: 0.85 MG, 1X/DAY
     Route: 042
     Dates: start: 20170511, end: 20170514
  17. METHYLPREDNISOLONE. [Concomitant]
     Active Substance: METHYLPREDNISOLONE
     Dosage: UNK
     Route: 037
     Dates: start: 20170510, end: 20170510
  18. INEXIUM /01479302/ [Concomitant]
     Active Substance: ESOMEPRAZOLE MAGNESIUM
  19. TOPALGIC (TRAMADOL HYDROCHLORIDE) [Concomitant]
     Active Substance: TRAMADOL HYDROCHLORIDE
     Dosage: UNK UNK, AS NEEDED
  20. ETOPOSIDE MYLAN [Interacting]
     Active Substance: ETOPOSIDE
     Indication: DIFFUSE LARGE B-CELL LYMPHOMA STAGE IV
     Dosage: 106 MG, 1X/DAY
     Route: 042
     Dates: start: 20170511, end: 20170514
  21. METHOTREXATE BIODIM [Interacting]
     Active Substance: METHOTREXATE
     Indication: DIFFUSE LARGE B-CELL LYMPHOMA STAGE IV
     Dosage: 15 MG, SINGLE
     Route: 037
     Dates: start: 20170510, end: 20170510
  22. MABTHERA [Interacting]
     Active Substance: RITUXIMAB
     Indication: DIFFUSE LARGE B-CELL LYMPHOMA STAGE IV
     Dosage: 800 MG, SINGLE
     Route: 042
     Dates: start: 20170510, end: 20170510
  23. CORTANCYL [Concomitant]
     Active Substance: PREDNISONE
     Indication: DIFFUSE LARGE B-CELL LYMPHOMA STAGE IV
     Dosage: 65 MG, DAILY
     Route: 048
     Dates: start: 20170511, end: 20170515
  24. BACTRIM [Concomitant]
     Active Substance: SULFAMETHOXAZOLE\TRIMETHOPRIM
  25. LEDERFOLINE [Concomitant]
     Active Substance: LEUCOVORIN CALCIUM
  26. DIFFU K [Concomitant]
     Active Substance: POTASSIUM CHLORIDE

REACTIONS (5)
  - Campylobacter gastroenteritis [Recovered/Resolved]
  - Acute kidney injury [Recovering/Resolving]
  - Septic shock [Recovered/Resolved]
  - Bone marrow failure [Recovered/Resolved]
  - Drug interaction [Recovering/Resolving]

NARRATIVE: CASE EVENT DATE: 20170520
